FAERS Safety Report 7994487-5 (Version None)
Quarter: 2011Q4

REPORT INFORMATION
  Report Type: 
  Country: None (occurrence: None)
  Receive Date: 20111220
  Receipt Date: 20111115
  Transmission Date: 20120403
  Serious: Yes (Other)
  Sender: FDA-Public Use
  Company Number: US-ELI_LILLY_AND_COMPANY-US201111000604

PATIENT
  Age: 59 Year
  Sex: Female

DRUGS (1)
  1. DULOXETINE HYDROCHLORIDE [Suspect]
     Dosage: UNK, UNKNOWN

REACTIONS (2)
  - WHITE BLOOD CELL COUNT INCREASED [None]
  - CARDIOMYOPATHY [None]
